FAERS Safety Report 17057136 (Version 1)
Quarter: 2019Q4

REPORT INFORMATION
  Report Type: Report from Study
  Country: CA (occurrence: CA)
  Receive Date: 20191121
  Receipt Date: 20191121
  Transmission Date: 20200122
  Serious: Yes (Other)
  Sender: FDA-Public Use
  Company Number: PHHY2017CA019631

PATIENT
  Age: 59 Year
  Sex: Female

DRUGS (11)
  1. ENTRESTO [Suspect]
     Active Substance: SACUBITRIL\VALSARTAN
     Dosage: 1 DF (24 MG SACUBITRIL/26 MG VALSARTAN) (1 TABLET), UNK
     Route: 065
     Dates: start: 20170113, end: 20170222
  2. ENTRESTO [Suspect]
     Active Substance: SACUBITRIL\VALSARTAN
     Dosage: 1 DF (49 MG SACUBITRIL/51 MG VALSARTAN) (1 TABLET), UNK
     Route: 065
     Dates: start: 20170113, end: 20170222
  3. ENTRESTO [Suspect]
     Active Substance: SACUBITRIL\VALSARTAN
     Dosage: 1 DF (49 MG SACUBITRIL/51 MG VALSARTAN) (1 TABLET), UNK
     Route: 065
     Dates: start: 20180501, end: 20180514
  4. ENTRESTO [Suspect]
     Active Substance: SACUBITRIL\VALSARTAN
     Dosage: 3 DF (24 MG SACUBITRIL/26 MG VALSARTAN) (3 TABLETS), UNK
     Route: 065
     Dates: start: 20180501, end: 20180514
  5. ENTRESTO [Suspect]
     Active Substance: SACUBITRIL\VALSARTAN
     Dosage: 1 DF (49 MG SACUBITRIL/51 MG VALSARTAN) (1 TABLET),  UNK
     Route: 065
     Dates: start: 20170501, end: 20170522
  6. ENTRESTO [Suspect]
     Active Substance: SACUBITRIL\VALSARTAN
     Dosage: 1 DF (97 MG SACUBITRIL/103 MG VALSARTAN) (1 TABLET), UNK
     Route: 065
     Dates: start: 20170425, end: 20180321
  7. ENTRESTO [Suspect]
     Active Substance: SACUBITRIL\VALSARTAN
     Dosage: 2 DF  (SACUBITRIL 49 MG/ VALSARTAN 51 MG) , UNK
     Route: 065
     Dates: start: 20170222, end: 20170424
  8. ENTRESTO [Suspect]
     Active Substance: SACUBITRIL\VALSARTAN
     Dosage: 1 DF (49 MG SACUBITRIL/51 MG VALSARTAN) (1 TABLET),  UNK
     Route: 065
     Dates: start: 20170425, end: 20180321
  9. ENTRESTO [Suspect]
     Active Substance: SACUBITRIL\VALSARTAN
     Indication: CARDIAC FAILURE
     Dosage: 2 DF (24 MG SACUBITRIL/26 MG VALSARTAN) (2TABLETS), UNK
     Route: 065
     Dates: start: 20161014, end: 20170112
  10. ENTRESTO [Suspect]
     Active Substance: SACUBITRIL\VALSARTAN
     Dosage: 2 DF (49 MG SACUBITRIL/51 MG VALSARTAN) (2 TABLETS), UNK
     Route: 065
     Dates: start: 20180322, end: 20180430
  11. ENTRESTO [Suspect]
     Active Substance: SACUBITRIL\VALSARTAN
     Dosage: 2 DF  (SACUBITRIL 49 MG/ VALSARTAN 51 MG)  (2 TABLETS), UNK
     Route: 065
     Dates: start: 20180515

REACTIONS (18)
  - Dolichocolon [Unknown]
  - Thrombocytopenia [Recovered/Resolved]
  - Abdominal distension [Not Recovered/Not Resolved]
  - Bile duct stone [Unknown]
  - Fatigue [Not Recovered/Not Resolved]
  - Ulcer [Recovering/Resolving]
  - Oedema [Unknown]
  - Anaemia [Recovered/Resolved]
  - Thrombocytopenia [Not Recovered/Not Resolved]
  - Pruritus [Recovered/Resolved]
  - Palpitations [Recovered/Resolved]
  - Glycosylated haemoglobin increased [Not Recovered/Not Resolved]
  - Renal impairment [Not Recovered/Not Resolved]
  - Dyspnoea [Not Recovered/Not Resolved]
  - Blood urea increased [Not Recovered/Not Resolved]
  - Renal impairment [Recovered/Resolved]
  - Blood creatinine increased [Not Recovered/Not Resolved]
  - Abdominal distension [Recovered/Resolved]

NARRATIVE: CASE EVENT DATE: 20161014
